FAERS Safety Report 23359009 (Version 1)
Quarter: 2024Q1

REPORT INFORMATION
  Report Type: Spontaneous
  Country: US (occurrence: US)
  Receive Date: 20240102
  Receipt Date: 20240102
  Transmission Date: 20240409
  Serious: No
  Sender: FDA-Public Use
  Company Number: US-MYLANLABS-2023M1130455

PATIENT

DRUGS (4)
  1. GABAPENTIN [Suspect]
     Active Substance: GABAPENTIN
     Indication: Product used for unknown indication
     Dosage: 600 MILLIGRAM, BID, 300 IN AM AND 900 AT BEDTIME
     Route: 065
  2. NITROGLYCERIN [Suspect]
     Active Substance: NITROGLYCERIN
     Indication: Chest pain
     Dosage: 0.4 MILLIGRAM (PLACE 1 TABLET (0.4 MG TOTAL) UNDER THE TONGUE EVERY 5 (FIVE) MINUTES AS NEEDED FOR C
     Route: 060
  3. CELEBREX [Suspect]
     Active Substance: CELECOXIB
     Indication: Product used for unknown indication
     Dosage: UNK
     Route: 065
  4. ESTROGENS, CONJUGATED [Concomitant]
     Active Substance: ESTROGENS, CONJUGATED
     Dosage: 0.15 MILLIGRAM, QD (TAKE 0.15 MG BY MOUTH DAILY)
     Route: 048

REACTIONS (4)
  - Swelling [Unknown]
  - Dyspepsia [Unknown]
  - Oesophageal spasm [Unknown]
  - Headache [Unknown]

NARRATIVE: CASE EVENT DATE: 20231204
